FAERS Safety Report 5082205-2 (Version None)
Quarter: 2006Q3

REPORT INFORMATION
  Report Type: 
  Country: None (occurrence: None)
  Receive Date: 20060817
  Receipt Date: 20060606
  Transmission Date: 20061208
  Serious: Yes (Hospitalization)
  Sender: FDA-Public Use
  Company Number: JP-BAYER-200610756BYL

PATIENT
  Age: 53 Year
  Sex: Female
  Weight: 53 kg

DRUGS (5)
  1. AVELOX [Suspect]
     Indication: BRONCHITIS
     Dosage: TOTAL DAILY DOSE: 400 MG  UNIT DOSE: 400 MG
     Route: 048
     Dates: start: 20060510, end: 20060514
  2. DASEN [Concomitant]
     Indication: BRONCHITIS
     Dosage: UNIT DOSE: 10 MG
     Route: 048
     Dates: start: 20060510, end: 20060514
  3. HUSCODE [Concomitant]
     Indication: BRONCHITIS
     Route: 048
     Dates: start: 20060510, end: 20060514
  4. LOXONIN [Concomitant]
     Dosage: TOTAL DAILY DOSE: 60 MG  UNIT DOSE: 60 MG
     Route: 048
  5. ISALON [Concomitant]
     Dosage: TOTAL DAILY DOSE: 100 MG  UNIT DOSE: 100 MG
     Route: 048

REACTIONS (9)
  - BALANCE DISORDER [None]
  - DECREASED APPETITE [None]
  - HYPOAESTHESIA [None]
  - MILLER FISHER SYNDROME [None]
  - PUPILLARY REFLEX IMPAIRED [None]
  - PUPILS UNEQUAL [None]
  - STOMACH DISCOMFORT [None]
  - VERTIGO [None]
  - VITH NERVE PARALYSIS [None]
